FAERS Safety Report 10121134 (Version 1)
Quarter: 2014Q2

REPORT INFORMATION
  Report Type: Spontaneous
  Country: US (occurrence: US)
  Receive Date: 20140425
  Receipt Date: 20140425
  Transmission Date: 20141212
  Serious: Yes (Other)
  Sender: FDA-Public Use
  Company Number: US-TEVA-477840USA

PATIENT
  Sex: Female

DRUGS (1)
  1. NORTREL [Suspect]
     Dosage: 1.0 MG/0.035 MG

REACTIONS (3)
  - Coeliac disease [Unknown]
  - Abdominal distension [Unknown]
  - Weight increased [Unknown]
